FAERS Safety Report 20151197 (Version 2)
Quarter: 2022Q1

REPORT INFORMATION
  Report Type: Spontaneous
  Country: GB (occurrence: GB)
  Receive Date: 20211206
  Receipt Date: 20220329
  Transmission Date: 20220423
  Serious: Yes (Hospitalization, Other)
  Sender: FDA-Public Use
  Company Number: GB-MYLANLABS-2021M1030150

PATIENT
  Age: 57 Year
  Sex: Female

DRUGS (2)
  1. CLOZARIL [Suspect]
     Active Substance: CLOZAPINE
     Indication: Schizophrenia
     Dosage: UNK
     Route: 048
     Dates: start: 20210520
  2. LITHIUM [Concomitant]
     Active Substance: LITHIUM
     Dosage: UNK

REACTIONS (9)
  - Hospitalisation [Unknown]
  - Thrombocytopenia [Unknown]
  - Malaise [Unknown]
  - Delusion [Unknown]
  - Neutrophil count increased [Recovered/Resolved]
  - White blood cell count decreased [Recovered/Resolved]
  - Neutrophilia [Unknown]
  - Leukocytosis [Unknown]
  - Off label use [Unknown]

NARRATIVE: CASE EVENT DATE: 20211029
